FAERS Safety Report 7019075-9 (Version None)
Quarter: 2010Q3

REPORT INFORMATION
  Report Type: 
  Country: None (occurrence: None)
  Receive Date: 20100928
  Receipt Date: 20100923
  Transmission Date: 20110219
  Serious: Yes (Other)
  Sender: FDA-Public Use
  Company Number: A0883083A

PATIENT
  Age: 32 Year
  Sex: Male

DRUGS (2)
  1. PROMACTA [Suspect]
     Indication: IDIOPATHIC THROMBOCYTOPENIC PURPURA
     Dosage: 75MG PER DAY
     Route: 048
     Dates: end: 20100722
  2. PREDNISONE [Concomitant]

REACTIONS (2)
  - BONE MARROW RETICULIN FIBROSIS [None]
  - DRUG INEFFECTIVE [None]
